FAERS Safety Report 5370806-3 (Version None)
Quarter: 2007Q2

REPORT INFORMATION
  Report Type: 
  Country: None (occurrence: None)
  Receive Date: 20070626
  Receipt Date: 20070620
  Transmission Date: 20071010
  Serious: Yes (Hospitalization)
  Sender: FDA-Public Use
  Company Number: D0053190A

PATIENT
  Sex: Female

DRUGS (1)
  1. ELONTRIL [Suspect]
     Route: 048
     Dates: start: 20070101

REACTIONS (3)
  - ABDOMINAL DISTENSION [None]
  - CONSTIPATION [None]
  - DRY MOUTH [None]
